FAERS Safety Report 5152431-2 (Version None)
Quarter: 2006Q4

REPORT INFORMATION
  Report Type: 
  Country: None (occurrence: None)
  Receive Date: 20061109
  Receipt Date: 20061103
  Transmission Date: 20070319
  Serious: Yes (Other)
  Sender: FDA-Public Use
  Company Number: EM2006-0629

PATIENT
  Sex: Female

DRUGS (1)
  1. PROLEUKIN [Suspect]
     Indication: OVARIAN CANCER METASTATIC
     Dosage: 720,000 IU/KG BW Q12H X 6 DOSES, INTRAVENOUS
     Route: 042

REACTIONS (4)
  - DIARRHOEA [None]
  - FATIGUE [None]
  - HYPOTENSION [None]
  - SINUS TACHYCARDIA [None]
